FAERS Safety Report 9668155 (Version 4)
Quarter: 2014Q1

REPORT INFORMATION
  Report Type: Spontaneous
  Country: US (occurrence: US)
  Receive Date: 20131104
  Receipt Date: 20140117
  Transmission Date: 20141002
  Serious: No
  Sender: FDA-Public Use
  Company Number: US-PFIZER INC-2013310490

PATIENT
  Age: 93 Year
  Sex: Female
  Weight: 54.42 kg

DRUGS (5)
  1. PREMARIN [Suspect]
     Indication: URINARY TRACT INFECTION
     Dosage: 1 G, DAILY FOR 7 DAYS, THEN TWICE WEEKLY
     Route: 067
     Dates: start: 20130916, end: 20130921
  2. PREMARIN [Suspect]
     Indication: URINARY TRACT INFECTION
  3. TAMSULOSIN [Concomitant]
     Dosage: 0.4 MG, UNK
  4. CRANBERRY [Concomitant]
     Dosage: 475 MG, UNK
  5. FLOMAX [Concomitant]
     Dosage: 0.4 G, DAILY

REACTIONS (5)
  - Vulvovaginal swelling [Recovered/Resolved]
  - Dry skin [Recovered/Resolved]
  - Urethral disorder [Recovered/Resolved]
  - Off label use [Unknown]
  - Drug ineffective for unapproved indication [Unknown]
